FAERS Safety Report 4805458-1 (Version None)
Quarter: 2005Q4

REPORT INFORMATION
  Report Type: 
  Country: None (occurrence: None)
  Receive Date: 20051018
  Receipt Date: 20051006
  Transmission Date: 20060501
  Serious: Yes (Hospitalization)
  Sender: FDA-Public Use
  Company Number: 2005128722

PATIENT
  Sex: Male

DRUGS (4)
  1. TOLTERODINE TARTRATE [Suspect]
     Indication: HYPERTONIC BLADDER
     Dosage: 4 MG (4 MG, 1 IN 1 D), ORAL
     Route: 048
     Dates: start: 20050801, end: 20050920
  2. EXELON [Concomitant]
  3. PURAN T4 (LEVOTHYROXINE SODIUM) [Concomitant]
  4. TRAZODONE HCL [Concomitant]

REACTIONS (6)
  - AGITATION [None]
  - CONDITION AGGRAVATED [None]
  - CONFUSIONAL STATE [None]
  - PHLEBITIS [None]
  - PROCEDURAL COMPLICATION [None]
  - URINARY TRACT INFECTION [None]
